FAERS Safety Report 8598680-2 (Version None)
Quarter: 2012Q3

REPORT INFORMATION
  Report Type: 
  Country: None (occurrence: None)
  Receive Date: 20120816
  Receipt Date: 19950331
  Transmission Date: 20120928
  Serious: Yes (Hospitalization)
  Sender: FDA-Public Use
  Company Number: US-ROCHE-1100698

PATIENT
  Sex: Male

DRUGS (7)
  1. HEPARIN [Concomitant]
     Dosage: 1000 MICRON/ML
  2. NITRO INFUSION [Concomitant]
  3. VALIUM [Concomitant]
     Route: 042
  4. MORPHINE SULFATE [Concomitant]
     Route: 042
  5. NITROGLYCERIN SPRAY [Concomitant]
  6. ACTIVASE [Suspect]
     Indication: ACUTE MYOCARDIAL INFARCTION
     Route: 040
  7. HEPARIN [Concomitant]
     Dosage: 1500 CC IVP
     Route: 040

REACTIONS (3)
  - DIZZINESS [None]
  - PAIN IN EXTREMITY [None]
  - CHEST PAIN [None]
